FAERS Safety Report 17269918 (Version 2)
Quarter: 2020Q1

REPORT INFORMATION
  Report Type: Spontaneous
  Country: DE (occurrence: DE)
  Receive Date: 20200114
  Receipt Date: 20200117
  Transmission Date: 20200409
  Serious: Yes (Death)
  Sender: FDA-Public Use
  Company Number: DE-EISAI MEDICAL RESEARCH-EC-2019-065947

PATIENT
  Age: 61 Year
  Sex: Male
  Weight: 70.9 kg

DRUGS (3)
  1. LENVIMA [Suspect]
     Active Substance: LENVATINIB
     Indication: PRODUCT USED FOR UNKNOWN INDICATION
     Route: 048
  2. INSULIN [Concomitant]
     Active Substance: INSULIN NOS
     Indication: DIABETES MELLITUS
     Dosage: DOSE AND FREQUENCY UNKNOWN
     Route: 058
  3. INSULIN GLARGINE [Concomitant]
     Active Substance: INSULIN GLARGINE
     Indication: DIABETES MELLITUS
     Dosage: DOSE AND FREQUENCY UNKNOWN
     Route: 058

REACTIONS (5)
  - Dysgeusia [Unknown]
  - Weight decreased [Unknown]
  - Neoplasm progression [Fatal]
  - Dysphonia [Unknown]
  - Cognitive disorder [Unknown]

NARRATIVE: CASE EVENT DATE: 20190606
